FAERS Safety Report 15315961 (Version 1)
Quarter: 2018Q3

REPORT INFORMATION
  Report Type: Spontaneous
  Country: US (occurrence: US)
  Receive Date: 20180816
  Receipt Date: 20180816
  Transmission Date: 20181010
  Serious: Yes (Other)
  Sender: FDA-Public Use
  Company Number: None

PATIENT
  Age: 51 Year
  Sex: Female
  Weight: 121.5 kg

DRUGS (9)
  1. LEVOTHYROXINE AND LIOTHYRONINE THYROID [Suspect]
     Active Substance: LEVOTHYROXINE\LIOTHYRONINE
     Indication: HYPOTHYROIDISM
     Dosage: ?          QUANTITY:15 TABLET(S);?
     Route: 048
     Dates: start: 20180731, end: 20180814
  2. PROGESTERONE. [Concomitant]
     Active Substance: PROGESTERONE
  3. ARMOUR THYROID [Concomitant]
     Active Substance: THYROID, PORCINE
  4. CELEBREX [Concomitant]
     Active Substance: CELECOXIB
  5. BUSPAR [Concomitant]
     Active Substance: BUSPIRONE HYDROCHLORIDE
  6. ALDACTONE [Concomitant]
     Active Substance: SPIRONOLACTONE
  7. ZYRTEC [Concomitant]
     Active Substance: CETIRIZINE HYDROCHLORIDE
  8. MULTI VIT/MIN [Concomitant]
  9. PROTONIX [Concomitant]
     Active Substance: PANTOPRAZOLE SODIUM

REACTIONS (5)
  - Sleep disorder [None]
  - Panic attack [None]
  - Product substitution issue [None]
  - Hypoglycaemia [None]
  - Anxiety [None]

NARRATIVE: CASE EVENT DATE: 20180801
